FAERS Safety Report 7275354-1 (Version None)
Quarter: 2011Q1

REPORT INFORMATION
  Report Type: 
  Country: None (occurrence: None)
  Receive Date: 20110204
  Receipt Date: 20110126
  Transmission Date: 20110831
  Serious: Yes (Hospitalization, Other)
  Sender: FDA-Public Use
  Company Number: DE-ELI_LILLY_AND_COMPANY-DE201101002907

PATIENT
  Age: 34 Year
  Sex: Female
  Weight: 70 kg

DRUGS (3)
  1. HOGGAR NIGHT [Concomitant]
     Dosage: 250 MG, UNK
  2. CYMBALTA [Suspect]
     Dosage: 900 MG, UNK
  3. ALCOHOL [Concomitant]

REACTIONS (8)
  - TACHYCARDIA [None]
  - SUICIDE ATTEMPT [None]
  - ASPARTATE AMINOTRANSFERASE INCREASED [None]
  - TREMOR [None]
  - INTENTIONAL OVERDOSE [None]
  - RHABDOMYOLYSIS [None]
  - GAMMA-GLUTAMYLTRANSFERASE INCREASED [None]
  - DELIRIUM [None]
